FAERS Safety Report 4754555-8 (Version None)
Quarter: 2005Q3

REPORT INFORMATION
  Report Type: 
  Country: None (occurrence: None)
  Receive Date: 20050825
  Receipt Date: 20050825
  Transmission Date: 20060218
  Serious: Yes (Disabling, Other)
  Sender: FDA-Public Use
  Company Number: None

PATIENT
  Sex: Female
  Weight: 54.4316 kg

DRUGS (1)
  1. ATIVAN [Suspect]
     Indication: INSOMNIA
     Dosage: 1 1/2 MG PER DAY UP TO 4 MG    DAILY   PO
     Route: 048
     Dates: start: 19981008

REACTIONS (16)
  - ABDOMINAL DISTENSION [None]
  - APHAGIA [None]
  - CLAUSTROPHOBIA [None]
  - COGNITIVE DETERIORATION [None]
  - DRUG DEPENDENCE [None]
  - DRUG TOLERANCE INCREASED [None]
  - DRUG WITHDRAWAL SYNDROME [None]
  - FATIGUE [None]
  - GASTROINTESTINAL HYPOMOTILITY [None]
  - HYPERHIDROSIS [None]
  - MALAISE [None]
  - MEMORY IMPAIRMENT [None]
  - MENTAL DISORDER [None]
  - PARTNER STRESS [None]
  - READING DISORDER [None]
  - UNEMPLOYMENT [None]
